FAERS Safety Report 21960180 (Version 2)
Quarter: 2023Q1

REPORT INFORMATION
  Report Type: Spontaneous
  Country: US (occurrence: US)
  Receive Date: 20230207
  Receipt Date: 20230215
  Transmission Date: 20230417
  Serious: Yes (Hospitalization)
  Sender: FDA-Public Use
  Company Number: US-BRISTOL-MYERS SQUIBB COMPANY-2023-017000

PATIENT
  Age: 75 Year
  Sex: Male
  Weight: 107.5 kg

DRUGS (1)
  1. POMALYST [Suspect]
     Active Substance: POMALIDOMIDE
     Indication: Plasma cell myeloma
     Dosage: DAILY?21D ON 7D OFF
     Route: 048
     Dates: start: 20221201

REACTIONS (1)
  - Hospitalisation [Not Recovered/Not Resolved]
